FAERS Safety Report 6069228-1 (Version None)
Quarter: 2009Q1

REPORT INFORMATION
  Report Type: 
  Country: None (occurrence: None)
  Receive Date: 20090206
  Receipt Date: 20090128
  Transmission Date: 20090719
  Serious: Yes (Other)
  Sender: FDA-Public Use
  Company Number: PHEH2008US11457

PATIENT
  Sex: Female

DRUGS (11)
  1. RECLAST [Suspect]
     Dosage: UNK
     Dates: start: 20080201
  2. FOSAMAX [Suspect]
  3. BONIVA [Suspect]
  4. CORTISONE [Suspect]
  5. COUMADIN [Concomitant]
  6. CELEBREX [Concomitant]
     Dosage: 200 MG, UNK
  7. TYLENOL [Concomitant]
  8. ATENOLOL [Concomitant]
  9. LANOXIN [Concomitant]
  10. CALCIUM D SANDOZ [Concomitant]
  11. STOOL SOFTENER [Concomitant]

REACTIONS (12)
  - ARTHRALGIA [None]
  - BONE PAIN [None]
  - DRUG INEFFECTIVE [None]
  - FRACTURE [None]
  - GAIT DISTURBANCE [None]
  - MUSCULOSKELETAL CHEST PAIN [None]
  - MYALGIA [None]
  - PAIN [None]
  - PAIN IN EXTREMITY [None]
  - SKIN WRINKLING [None]
  - SLEEP DISORDER [None]
  - WALKING AID USER [None]
